FAERS Safety Report 9310260 (Version 1)
Quarter: 2013Q2

REPORT INFORMATION
  Report Type: Report from Study
  Country: US (occurrence: US)
  Receive Date: 20130527
  Receipt Date: 20130527
  Transmission Date: 20140414
  Serious: Yes (Death)
  Sender: FDA-Public Use
  Company Number: PHEH2013US011516

PATIENT
  Age: 63 Year
  Sex: Male

DRUGS (5)
  1. ZOMETA [Suspect]
     Indication: PROSTATE CANCER
     Dosage: 4 MG/5 ML, EVERY 4 WEEKS
     Route: 042
     Dates: start: 20090109
  2. DEXAMETHASONE [Concomitant]
     Dosage: UNK UKN, UNK
  3. RANITIDINE [Concomitant]
     Dosage: UNK UKN, UNK
  4. NEULASTA [Concomitant]
     Dosage: UNK UKN, UNK
  5. ZOLADEX [Concomitant]
     Dosage: UNK UKN, UNK

REACTIONS (1)
  - Death [Fatal]
